FAERS Safety Report 4890890-0 (Version None)
Quarter: 2006Q1

REPORT INFORMATION
  Report Type: 
  Country: None (occurrence: None)
  Receive Date: 20060125
  Receipt Date: 20060119
  Transmission Date: 20060701
  Serious: Yes (Life-Threatening)
  Sender: FDA-Public Use
  Company Number: PHBS2006HR01182

PATIENT
  Age: 19 Year
  Sex: Male

DRUGS (2)
  1. TEGRETOL [Suspect]
     Dosage: 50 X 200 MG ONCE/SINGLE
     Route: 048
  2. CANNABINOIDS [Concomitant]

REACTIONS (19)
  - BLOOD PRESSURE SYSTOLIC DECREASED [None]
  - BUNDLE BRANCH BLOCK RIGHT [None]
  - DRUG LEVEL INCREASED [None]
  - DRUG SCREEN POSITIVE [None]
  - ELECTROCARDIOGRAM PR PROLONGATION [None]
  - ELECTROCARDIOGRAM QRS COMPLEX PROLONGED [None]
  - GASTRIC LAVAGE [None]
  - GLASGOW COMA SCALE ABNORMAL [None]
  - HEART RATE INCREASED [None]
  - HYPOKALAEMIA [None]
  - INTENTIONAL OVERDOSE [None]
  - INTUBATION [None]
  - LOSS OF CONSCIOUSNESS [None]
  - MYOCLONIC EPILEPSY [None]
  - NYSTAGMUS [None]
  - PYREXIA [None]
  - SINUS TACHYCARDIA [None]
  - STUPOR [None]
  - VOMITING [None]
